FAERS Safety Report 6147358-3 (Version None)
Quarter: 2009Q2

REPORT INFORMATION
  Report Type: 
  Country: None (occurrence: None)
  Receive Date: 20090408
  Receipt Date: 20090402
  Transmission Date: 20091009
  Serious: Yes (Death, Hospitalization, Other)
  Sender: FDA-Public Use
  Company Number: PHHY2008MX09785

PATIENT
  Sex: Female

DRUGS (1)
  1. DIOVAN HCT [Suspect]
     Indication: HYPERTENSION
     Dosage: 1 TABLET(80 MG VALSARTAN/12.5 HYDROCHLOROTHIAZIDE) PER DAY
     Route: 048
     Dates: start: 20070201

REACTIONS (7)
  - CARDIAC FAILURE [None]
  - CARDIO-RESPIRATORY ARREST [None]
  - CHEST DISCOMFORT [None]
  - HYPOTENSION [None]
  - INFLUENZA [None]
  - PNEUMONIA [None]
  - RENAL FAILURE [None]
